FAERS Safety Report 6349818-9 (Version None)
Quarter: 2009Q3

REPORT INFORMATION
  Report Type: 
  Country: None (occurrence: None)
  Receive Date: 20090911
  Receipt Date: 20090820
  Transmission Date: 20100115
  Serious: Yes (Other)
  Sender: FDA-Public Use
  Company Number: JP-MERCK-0908USA04220

PATIENT
  Age: 58 Year
  Sex: Female
  Weight: 46 kg

DRUGS (13)
  1. PEPCID [Suspect]
     Route: 048
     Dates: end: 20060928
  2. ASPIRIN [Suspect]
     Route: 065
     Dates: end: 20060928
  3. NICORANDIL [Suspect]
     Route: 065
     Dates: end: 20060928
  4. TICLOPIDINE HYDROCHLORIDE [Suspect]
     Route: 065
     Dates: end: 20060928
  5. CARVEDILOL [Concomitant]
     Route: 065
     Dates: end: 20080928
  6. PRAVASTATIN SODIUM [Concomitant]
     Route: 065
     Dates: end: 20060928
  7. VITAMIN B COMPLEX [Concomitant]
     Route: 065
     Dates: end: 20060928
  8. PREDNISOLONE [Concomitant]
     Route: 065
  9. TEPRENONE [Concomitant]
     Route: 065
     Dates: end: 20060928
  10. INDOMETHINE [Concomitant]
     Route: 065
     Dates: end: 20060928
  11. ALFACALCIDOL [Concomitant]
     Route: 065
     Dates: end: 20060928
  12. ZOLPIDEM TARTRATE [Concomitant]
     Route: 065
  13. SIROLIMUS [Concomitant]
     Route: 065

REACTIONS (1)
  - CHOLESTATIC LIVER INJURY [None]
